FAERS Safety Report 5287814-3 (Version None)
Quarter: 2007Q2

REPORT INFORMATION
  Report Type: 
  Country: None (occurrence: None)
  Receive Date: 20070402
  Receipt Date: 20070402
  Transmission Date: 20071010
  Serious: Yes (Hospitalization)
  Sender: FDA-Public Use
  Company Number: None

PATIENT
  Sex: Female

DRUGS (1)
  1. IBANDRONATE 150 MG (BONIVA) [Suspect]
     Indication: OSTEOPOROSIS
     Dosage: GIVEN ONCE PO
     Route: 048
     Dates: start: 20070127

REACTIONS (1)
  - SPINAL OSTEOARTHRITIS [None]
